FAERS Safety Report 8480008-X (Version None)
Quarter: 2012Q2

REPORT INFORMATION
  Report Type: 
  Country: None (occurrence: None)
  Receive Date: 20120629
  Receipt Date: 20120625
  Transmission Date: 20120825
  Serious: Yes (Hospitalization)
  Sender: FDA-Public Use
  Company Number: IL-ROCHE-793785

PATIENT
  Sex: Male
  Weight: 89 kg

DRUGS (15)
  1. VEMURAFENIB [Suspect]
     Indication: METASTATIC MALIGNANT MELANOMA
     Dosage: LAST DOSE PRIOR TO SAE: 25 JULY 2011.
     Route: 048
     Dates: start: 20110713, end: 20110725
  2. LORATADINE [Concomitant]
     Dates: start: 20110724, end: 20110810
  3. GLUCOPHAGE [Concomitant]
  4. RAFAPEN [Concomitant]
  5. PREDNISONE TAB [Concomitant]
     Dates: start: 20110731, end: 20110810
  6. AMLODIPINE [Concomitant]
  7. RAMIPRIL [Concomitant]
  8. PREDNISONE TAB [Concomitant]
     Dates: start: 20110726, end: 20110731
  9. VEMURAFENIB [Suspect]
     Dosage: TEMPORARILY INTERRUPTED: 26 JULY 2011
     Route: 048
     Dates: start: 20110725, end: 20110726
  10. VEMURAFENIB [Suspect]
     Route: 048
  11. SIMVASTATIN [Concomitant]
  12. AMLODIPINE [Concomitant]
  13. ASPIRIN [Concomitant]
  14. AMILORIDE HYDROCHLORIDE [Concomitant]
  15. ACETAMINOPHEN [Concomitant]
     Dates: start: 20110724, end: 20110803

REACTIONS (1)
  - LEUKOCYTOCLASTIC VASCULITIS [None]
